FAERS Safety Report 16984821 (Version 1)
Quarter: 2019Q4

REPORT INFORMATION
  Report Type: Report from Study
  Country: CO (occurrence: CO)
  Receive Date: 20191101
  Receipt Date: 20191101
  Transmission Date: 20200122
  Serious: Yes (Death)
  Sender: FDA-Public Use
  Company Number: CO-SEATTLE GENETICS-2018SGN01523

PATIENT
  Age: 22 Year
  Sex: Male
  Weight: 74 kg

DRUGS (1)
  1. BRENTUXIMAB VEDOTIN-MPI [Suspect]
     Active Substance: BRENTUXIMAB VEDOTIN
     Indication: HODGKIN^S DISEASE
     Dosage: 135 MG, Q21D
     Route: 042
     Dates: start: 20180405, end: 20180830

REACTIONS (3)
  - Death [Fatal]
  - Drug ineffective [Unknown]
  - Hypersensitivity [Recovered/Resolved]

NARRATIVE: CASE EVENT DATE: 20180618
